FAERS Safety Report 6056289-9 (Version None)
Quarter: 2009Q1

REPORT INFORMATION
  Report Type: 
  Country: None (occurrence: None)
  Receive Date: 20090126
  Receipt Date: 20090126
  Transmission Date: 20090719
  Serious: Yes (Other)
  Sender: FDA-Public Use
  Company Number: None

PATIENT
  Sex: Female

DRUGS (1)
  1. APRI [Suspect]
     Indication: DYSMENORRHOEA
     Dosage: ONCE TABLET (0.15-30 MG-MCG) ONCE A DAY ORAL
     Route: 048

REACTIONS (1)
  - RASH [None]
